FAERS Safety Report 4543621-8 (Version None)
Quarter: 2005Q1

REPORT INFORMATION
  Report Type: 
  Country: None (occurrence: None)
  Receive Date: 20050103
  Receipt Date: 20041222
  Transmission Date: 20050727
  Serious: Yes (Other)
  Sender: FDA-Public Use
  Company Number: NL-GLAXOSMITHKLINE-B0363025A

PATIENT
  Age: 7 Year
  Sex: Male

DRUGS (4)
  1. MUPIROCIN [Suspect]
     Indication: BACTERIAL INFECTION
     Route: 065
     Dates: start: 20040511
  2. FLUTICASONE PROPIONATE [Suspect]
     Dosage: 50MCG UNKNOWN
     Route: 065
     Dates: start: 20021209
  3. SALBUTAMOL SULPHATE [Suspect]
     Dosage: 100MCG UNKNOWN
     Route: 065
     Dates: start: 20021209
  4. ALBUTEROL [Concomitant]
     Route: 065

REACTIONS (1)
  - SKIN DEPIGMENTATION [None]
